FAERS Safety Report 9193428 (Version 1)
Quarter: 2013Q1

REPORT INFORMATION
  Report Type: Spontaneous
  Country: FI (occurrence: FI)
  Receive Date: 20130327
  Receipt Date: 20130327
  Transmission Date: 20140127
  Serious: Yes (Other)
  Sender: FDA-Public Use
  Company Number: FI-ROCHE-1202063

PATIENT
  Age: 62 Year
  Sex: Male
  Weight: 74 kg

DRUGS (5)
  1. XELODA [Suspect]
     Indication: COLON CANCER
     Dosage: 1500MG + 2000MG/DAY
     Route: 048
  2. XELODA [Suspect]
     Dosage: DOSE DECRESED TO 1000MG + 1500MG /DAY
     Route: 048
     Dates: end: 20120115
  3. AVASTIN [Suspect]
     Indication: COLON CANCER
     Route: 065
  4. OXALIPLATIN [Suspect]
     Indication: COLON CANCER
     Route: 065
  5. XATRAL SR [Concomitant]
     Indication: BENIGN PROSTATIC HYPERPLASIA
     Route: 065

REACTIONS (12)
  - Palmar-plantar erythrodysaesthesia syndrome [Unknown]
  - Atrial fibrillation [Unknown]
  - Allodynia [Recovering/Resolving]
  - Neutropenia [Recovering/Resolving]
  - Hypertension [Unknown]
  - Cognitive disorder [Unknown]
  - Oedema peripheral [Unknown]
  - Protein urine [Unknown]
  - Hypersensitivity [Unknown]
  - Hyperglycaemia [Unknown]
  - Laryngospasm [Unknown]
  - Carbohydrate antigen 19-9 increased [Unknown]
